FAERS Safety Report 7271116-X (Version None)
Quarter: 2011Q1

REPORT INFORMATION
  Report Type: 
  Country: None (occurrence: None)
  Receive Date: 20110202
  Receipt Date: 20110124
  Transmission Date: 20110831
  Serious: Yes (Hospitalization)
  Sender: FDA-Public Use
  Company Number: US-ASTRAZENECA-2010SE31442

PATIENT
  Sex: Female

DRUGS (3)
  1. PREVACID [Concomitant]
  2. NEXIUM [Suspect]
     Route: 048
  3. PRILOSEC OTC [Suspect]
     Route: 048

REACTIONS (10)
  - EAR PAIN [None]
  - PAIN IN EXTREMITY [None]
  - NECK PAIN [None]
  - GASTROOESOPHAGEAL REFLUX DISEASE [None]
  - DRUG DOSE OMISSION [None]
  - CHEST PAIN [None]
  - BACK PAIN [None]
  - DRUG INEFFECTIVE [None]
  - MALAISE [None]
  - DYSPEPSIA [None]
